FAERS Safety Report 11451829 (Version 1)
Quarter: 2015Q3

REPORT INFORMATION
  Report Type: Report from Study
  Country: NL (occurrence: NL)
  Receive Date: 20150903
  Receipt Date: 20150903
  Transmission Date: 20151125
  Serious: Yes (Other)
  Sender: FDA-Public Use
  Company Number: NL-ROCHE-1629986

PATIENT
  Age: 64 Year
  Sex: Male

DRUGS (3)
  1. VALPROIC ACID. [Suspect]
     Active Substance: VALPROIC ACID
     Indication: NASOPHARYNGEAL CANCER
     Dosage: DAY 1 TILL DAY 14
     Route: 048
  2. GANCICLOVIR. [Suspect]
     Active Substance: GANCICLOVIR
     Indication: NASOPHARYNGEAL CANCER
     Dosage: FROM DAY 8 TILL 21 DAILY
     Route: 048
  3. GEMCITABINE [Suspect]
     Active Substance: GEMCITABINE\GEMCITABINE HYDROCHLORIDE
     Indication: NASOPHARYNGEAL CANCER
     Dosage: DAY 1 AND DAY 8
     Route: 042

REACTIONS (1)
  - Cerebrovascular accident [Unknown]
